FAERS Safety Report 10004484 (Version 1)
Quarter: 2014Q1

REPORT INFORMATION
  Report Type: Spontaneous
  Country: CL (occurrence: CL)
  Receive Date: 20140312
  Receipt Date: 20140312
  Transmission Date: 20141002
  Serious: Yes (Other)
  Sender: FDA-Public Use
  Company Number: CL-PFIZER INC-2014067800

PATIENT
  Age: 79 Year
  Sex: Female

DRUGS (4)
  1. XALATAN [Suspect]
     Indication: GLAUCOMA
     Dosage: 1 DROP FOR EACH EYE, 1X/DAY
     Dates: start: 2012
  2. LIPITOR [Concomitant]
  3. COAPROVEL [Concomitant]
  4. GLUCOSAMINE [Concomitant]

REACTIONS (4)
  - Diverticulitis [Not Recovered/Not Resolved]
  - Rectal haemorrhage [Recovered/Resolved]
  - Eye disorder [Unknown]
  - Haemorrhoids [Not Recovered/Not Resolved]
